FAERS Safety Report 25559993 (Version 1)
Quarter: 2025Q3

REPORT INFORMATION
  Report Type: Spontaneous
  Country: EU (occurrence: EU)
  Receive Date: 20250715
  Receipt Date: 20250715
  Transmission Date: 20251021
  Serious: Yes (Hospitalization)
  Sender: BIOMARIN
  Company Number: EU-BIOMARINAP-PL-2025-167308

PATIENT
  Sex: Female

DRUGS (1)
  1. VOXZOGO [Suspect]
     Active Substance: VOSORITIDE
     Indication: Osteochondrodysplasia

REACTIONS (2)
  - Respiratory tract infection [Recovered/Resolved]
  - Foramen magnum stenosis [Recovered/Resolved]
